FAERS Safety Report 10576134 (Version 1)
Quarter: 2014Q4

REPORT INFORMATION
  Report Type: Spontaneous
  Country: JP (occurrence: JP)
  Receive Date: 20141111
  Receipt Date: 20141111
  Transmission Date: 20150529
  Serious: Yes (Other)
  Sender: FDA-Public Use
  Company Number: JP-TEVA-520749ISR

PATIENT
  Age: 21 Year
  Sex: Female

DRUGS (6)
  1. CICLOSPORIN [Suspect]
     Active Substance: CYCLOSPORINE
     Indication: IMMUNOSUPPRESSANT DRUG THERAPY
     Dosage: 150 MG/DAY, THEN 200 MG/DAY
     Route: 048
  2. PREDNISOLONE. [Suspect]
     Active Substance: PREDNISOLONE
     Indication: IMMUNOSUPPRESSANT DRUG THERAPY
     Dosage: 50 MG/DAY, FOR 2 COURSES, THEN TAPERED
     Route: 065
  3. CICLOSPORIN [Suspect]
     Active Substance: CYCLOSPORINE
     Indication: IMMUNOSUPPRESSANT DRUG THERAPY
     Dosage: 200 MG/DAY
     Route: 048
  4. METHYLPREDNISOLONE. [Suspect]
     Active Substance: METHYLPREDNISOLONE
     Indication: IMMUNOSUPPRESSANT DRUG THERAPY
     Dosage: 1 G/DAY FOR 3 DAYS, FOR 2 COURSES
     Route: 065
  5. IMMUNE GLOBULIN [Concomitant]
     Active Substance: HUMAN IMMUNOGLOBULIN G
     Route: 042
  6. LINEZOLID. [Suspect]
     Active Substance: LINEZOLID
     Indication: STAPHYLOCOCCAL BACTERAEMIA
     Dosage: 1200 MILLIGRAM DAILY; TWO 4-WEEK COURSES, THEN A 6-WEEK COURSE
     Route: 048

REACTIONS (8)
  - Staphylococcal sepsis [Recovering/Resolving]
  - Septic embolus [Recovering/Resolving]
  - Device related sepsis [Recovering/Resolving]
  - Staphylococcal bacteraemia [Recovering/Resolving]
  - Thrombocytopenia [Recovered/Resolved]
  - Staphylococcal osteomyelitis [Recovering/Resolving]
  - Septic arthritis staphylococcal [Recovering/Resolving]
  - Anaemia [Recovered/Resolved]
